FAERS Safety Report 5764655-1 (Version None)
Quarter: 2008Q2

REPORT INFORMATION
  Report Type: 
  Country: None (occurrence: None)
  Receive Date: 20080611
  Receipt Date: 20080605
  Transmission Date: 20081010
  Serious: Yes (Death, Other)
  Sender: FDA-Public Use
  Company Number: PHHO2008DE06687

PATIENT
  Sex: Male
  Weight: 64 kg

DRUGS (3)
  1. SANDIMMUNE [Suspect]
     Dosage: UNK
     Dates: start: 20080224, end: 20080524
  2. MYCOPHENOLATE MOFETIL [Suspect]
     Indication: HEART TRANSPLANT
     Dosage: UNK
     Dates: start: 20080227, end: 20080229
  3. PREDNISOLONE [Concomitant]
     Indication: HEART TRANSPLANT
     Dosage: 5 MG, QD
     Dates: start: 20080224

REACTIONS (3)
  - ARRHYTHMIA [None]
  - MALAISE [None]
  - SELF-MEDICATION [None]
